FAERS Safety Report 4381629-6 (Version None)
Quarter: 2004Q2

REPORT INFORMATION
  Report Type: 
  Country: None (occurrence: None)
  Receive Date: 20040615
  Receipt Date: 20040528
  Transmission Date: 20050107
  Serious: Yes (Disabling)
  Sender: FDA-Public Use
  Company Number: B0334617A

PATIENT
  Age: 33 Year
  Sex: Male

DRUGS (6)
  1. NICODERM CQ [Suspect]
     Indication: EX-SMOKER
     Dosage: 21 MG/ TRANSDERMAL
     Route: 062
     Dates: start: 20040109
  2. NICODERM CQ [Suspect]
     Indication: EX-SMOKER
     Dosage: 14 MG/TRANSDERMAL
     Route: 062
  3. NICODERM CQ [Suspect]
     Indication: EX-SMOKER
     Dosage: 7 MG/ TRANSDERMAL
     Route: 062
     Dates: end: 20040308
  4. HYOSCINE HBR HYT [Concomitant]
  5. LAMOTRIGINE [Concomitant]
  6. CARBAMAZEPINE [Concomitant]

REACTIONS (2)
  - CONDITION AGGRAVATED [None]
  - EPILEPSY [None]
